FAERS Safety Report 10555653 (Version 2)
Quarter: 2015Q1

REPORT INFORMATION
  Report Type: Report from Study
  Country: US (occurrence: US)
  Receive Date: 20141030
  Receipt Date: 20150127
  Transmission Date: 20150720
  Serious: Yes (Hospitalization)
  Sender: FDA-Public Use
  Company Number: US-EXELIXIS-CABO-14004872

PATIENT
  Sex: Male
  Weight: 77.1 kg

DRUGS (2)
  1. CABOZANTINIB [Suspect]
     Active Substance: CABOZANTINIB
     Indication: RENAL CANCER
     Dosage: 60 MG, QD
     Route: 048
     Dates: start: 20141013, end: 20141024
  2. CABOZANTINIB [Suspect]
     Active Substance: CABOZANTINIB
     Dosage: 60 MG, QD
     Route: 048
     Dates: start: 201412

REACTIONS (18)
  - Incontinence [Unknown]
  - Oesophagitis [Unknown]
  - Nausea [Unknown]
  - Blister [Unknown]
  - Skin disorder [Unknown]
  - Skin ulcer [Unknown]
  - Dry skin [Unknown]
  - Oral discomfort [Unknown]
  - Blood urine present [Recovered/Resolved]
  - Vomiting [Unknown]
  - Cancer pain [Unknown]
  - Stomatitis [Unknown]
  - Off label use [Unknown]
  - Oral infection [Unknown]
  - Urine odour abnormal [Unknown]
  - Peripheral swelling [Unknown]
  - Oral pain [Unknown]
  - Impaired healing [Unknown]

NARRATIVE: CASE EVENT DATE: 2014
